FAERS Safety Report 24548648 (Version 1)
Quarter: 2024Q4

REPORT INFORMATION
  Report Type: Report from Study
  Country: GB (occurrence: GB)
  Receive Date: 20241025
  Receipt Date: 20241025
  Transmission Date: 20250115
  Serious: Yes (Other)
  Sender: SANDOZ
  Company Number: GB-SANDOZ-SDZ2024GB058850

PATIENT
  Sex: Male

DRUGS (1)
  1. HYRIMOZ [Suspect]
     Active Substance: ADALIMUMAB-ADAZ
     Indication: Rheumatoid arthritis
     Dosage: 40 MG, Q2W HYRIMOZ 40MG/0.4ML SOLUTION FOR INJECTION PRE-FILLED PENS
     Route: 058
     Dates: start: 20231213

REACTIONS (2)
  - Surgery [Unknown]
  - COVID-19 [Unknown]
